FAERS Safety Report 15404192 (Version 1)
Quarter: 2018Q3

REPORT INFORMATION
  Report Type: Spontaneous
  Country: US (occurrence: US)
  Receive Date: 20180919
  Receipt Date: 20180919
  Transmission Date: 20181010
  Serious: No
  Sender: FDA-Public Use
  Company Number: US-WELLSTAT THERAPEUTICS CORPORATION-2055143

PATIENT
  Age: 43 Year
  Sex: Male
  Weight: 94.68 kg

DRUGS (1)
  1. VISTOGARD [Suspect]
     Active Substance: URIDINE TRIACETATE
     Indication: CHEMOTHERAPY TOXICITY ATTENUATION
     Route: 048
     Dates: start: 20180802

REACTIONS (3)
  - Dysphagia [Unknown]
  - Throat tightness [Unknown]
  - Hiccups [Unknown]

NARRATIVE: CASE EVENT DATE: 201808
